FAERS Safety Report 23293392 (Version 2)
Quarter: 2024Q2

REPORT INFORMATION
  Report Type: Spontaneous
  Country: CN (occurrence: CN)
  Receive Date: 20231213
  Receipt Date: 20240416
  Transmission Date: 20240716
  Serious: Yes (Other)
  Sender: FDA-Public Use
  Company Number: CN-SUN PHARMACEUTICAL INDUSTRIES LTD-2023R1-423379

PATIENT
  Age: 37 Year

DRUGS (1)
  1. TEMOZOLOMIDE [Suspect]
     Active Substance: TEMOZOLOMIDE
     Indication: Chemotherapy
     Dosage: 75 MILLIGRAM/SQ. METER, DAILY/ 12 CYCLES
     Route: 065

REACTIONS (1)
  - Lymphocyte count decreased [Unknown]
